FAERS Safety Report 7088164-5 (Version None)
Quarter: 2010Q4

REPORT INFORMATION
  Report Type: 
  Country: None (occurrence: None)
  Receive Date: 20101028
  Receipt Date: 20101020
  Transmission Date: 20110411
  Serious: Yes (Hospitalization)
  Sender: FDA-Public Use
  Company Number: 729300

PATIENT
  Age: 17 Year
  Sex: Female

DRUGS (8)
  1. ETOPOSIDE [Suspect]
     Indication: NEPHROBLASTOMA
  2. VINCRISTINE SULFATE [Suspect]
     Indication: NEPHROBLASTOMA
  3. VINCRISTINE SULFATE [Suspect]
     Indication: NEPHROBLASTOMA
  4. (ACTINOMYCIN D) [Suspect]
     Indication: NEPHROBLASTOMA
  5. CYCLOPHOSPHAMIDE [Suspect]
     Indication: NEPHROBLASTOMA
  6. DOXORUBICIN HCL [Suspect]
     Indication: NEPHROBLASTOMA
  7. IFOSFAMIDE [Suspect]
     Indication: NEPHROBLASTOMA
  8. (THERAPEUTIC RADIOPHARMACEUTICALS) [Suspect]
     Indication: NEPHROBLASTOMA
     Dosage: 1080 CGY,

REACTIONS (2)
  - LYMPHADENOPATHY [None]
  - RENAL CYST [None]
